FAERS Safety Report 13399887 (Version 2)
Quarter: 2017Q2

REPORT INFORMATION
  Report Type: Spontaneous
  Country: GB (occurrence: None)
  Receive Date: 20170403
  Receipt Date: 20170508
  Transmission Date: 20170830
  Serious: Yes (Other)
  Sender: FDA-Public Use
  Company Number: GB2017K1922SPO

PATIENT
  Sex: Female

DRUGS (10)
  1. OXPRENOLOL (OXPRENOLOL) [Suspect]
     Active Substance: OXPRENOLOL
     Indication: HYPERTENSION
  2. LANSOPRAZOLE GENERIC (LANSOPRAZOLE) UNKNOWN [Suspect]
     Active Substance: LANSOPRAZOLE
     Indication: PRODUCT USED FOR UNKNOWN INDICATION
     Dosage: ONLY TAKE ON ODD OCCASIONS
  3. DOXAZOSIN [Suspect]
     Active Substance: DOXAZOSIN\DOXAZOSIN MESYLATE
     Indication: HYPERTENSION
     Route: 048
     Dates: start: 1990
  4. AMLODIPINE [Suspect]
     Active Substance: AMLODIPINE BESYLATE
     Indication: HYPERTENSION
     Dates: start: 201307
  5. AMITRIPTYLINE (AMITRIPTYLINE) [Suspect]
     Active Substance: AMITRIPTYLINE
     Indication: PRODUCT USED FOR UNKNOWN INDICATION
     Dosage: TAKEN 2 X 50 MGONLY TAKE ON ODD OCCASIONS
  6. ARIPIPRAZOLE GENERIC (ARIPIPRAZOLE FUMARATE) UNKNOWN [Suspect]
     Active Substance: ARIPIPRAZOLE
     Indication: PRODUCT USED FOR UNKNOWN INDICATION
     Dates: start: 201612
  7. BISOPROLOL (BISOPROLOL) [Suspect]
     Active Substance: BISOPROLOL
     Indication: HYPERTENSION
     Dates: start: 201502
  8. ALENDRONIC ACID (ALENDRONIC ACID) [Suspect]
     Active Substance: ALENDRONIC ACID
     Indication: OSTEOPOROSIS
     Route: 048
     Dates: start: 201402, end: 201608
  9. PROLIA [Suspect]
     Active Substance: DENOSUMAB
     Indication: OSTEOPOROSIS
     Dosage: SECOND INJECTION WAS SUPPOSED TO BE ON 14-FEB-2017 BUT THIS WAS CANCELLED
     Dates: start: 201608
  10. ADCAL-D3 (CALCIUM CARBONATE, COLECALCIFEROL) [Suspect]
     Active Substance: CALCIUM CARBONATE\CHOLECALCIFEROL
     Indication: OSTEOPOROSIS
     Dates: start: 201402

REACTIONS (18)
  - Myalgia [None]
  - Chest discomfort [None]
  - Erythema [None]
  - Abdominal discomfort [None]
  - Arthralgia [None]
  - Muscle spasms [None]
  - Dyspnoea [None]
  - Urinary tract infection [None]
  - Dysuria [None]
  - Headache [None]
  - Rhinorrhoea [None]
  - Aortic valve incompetence [None]
  - Pain [None]
  - Bone pain [None]
  - Burning sensation [None]
  - Rectal prolapse [None]
  - Constipation [None]
  - Influenza like illness [None]
